FAERS Safety Report 13292875 (Version 1)
Quarter: 2017Q1

REPORT INFORMATION
  Report Type: Spontaneous
  Country: US (occurrence: US)
  Receive Date: 20170303
  Receipt Date: 20170303
  Transmission Date: 20170428
  Serious: No
  Sender: FDA-Public Use
  Company Number: US-ELI_LILLY_AND_COMPANY-US201702006400

PATIENT
  Age: 50 Year
  Sex: Male

DRUGS (2)
  1. CIALIS [Suspect]
     Active Substance: TADALAFIL
     Indication: ERECTILE DYSFUNCTION
     Dosage: 5 MG, PRN
     Route: 065
     Dates: start: 2012
  2. CIALIS [Suspect]
     Active Substance: TADALAFIL
     Dosage: 10 MG (5MG X 2 TABLETS), PRN
     Route: 065

REACTIONS (5)
  - Erectile dysfunction [Unknown]
  - Upper respiratory tract infection [Unknown]
  - Expired product administered [Unknown]
  - Influenza [Unknown]
  - Drug ineffective [Unknown]
